FAERS Safety Report 14108576 (Version 2)
Quarter: 2017Q4

REPORT INFORMATION
  Report Type: Spontaneous
  Country: JP (occurrence: JP)
  Receive Date: 20171019
  Receipt Date: 20171102
  Transmission Date: 20180321
  Serious: Yes (Hospitalization, Other)
  Sender: FDA-Public Use
  Company Number: JP-CELGENEUS-JPN-20170510262

PATIENT
  Sex: Male
  Weight: 42.1 kg

DRUGS (7)
  1. PARIET [Concomitant]
     Active Substance: RABEPRAZOLE SODIUM
     Indication: GASTROOESOPHAGEAL REFLUX DISEASE
     Dosage: 10 MILLIGRAM
     Route: 048
     Dates: start: 20150513
  2. LENADEX [Suspect]
     Active Substance: DEXAMETHASONE ACETATE
     Indication: PLASMA CELL MYELOMA
     Dosage: 12 MILLIGRAM
     Route: 048
     Dates: start: 20151021, end: 20170305
  3. ACICLOVIR [Concomitant]
     Active Substance: ACYCLOVIR
     Indication: INFECTION PROPHYLAXIS
     Dosage: 200 MILLIGRAM
     Route: 048
     Dates: start: 20110217
  4. CELECOX [Concomitant]
     Active Substance: CELECOXIB
     Indication: BACK PAIN
     Dosage: 100 MILLIGRAM
     Route: 048
     Dates: start: 20110219
  5. REBAMIPIDE [Concomitant]
     Active Substance: REBAMIPIDE
     Indication: CHRONIC GASTRITIS
     Dosage: 100 MILLIGRAM
     Route: 048
     Dates: start: 20130314
  6. DAIPHEN [Concomitant]
     Active Substance: SULFAMETHOXAZOLE\TRIMETHOPRIM
     Indication: INFECTION PROPHYLAXIS
     Dosage: 1 DF
     Route: 048
     Dates: start: 20110208
  7. POMALYST [Suspect]
     Active Substance: POMALIDOMIDE
     Indication: PLASMA CELL MYELOMA
     Dosage: 3 MILLIGRAM
     Route: 048
     Dates: start: 20151021, end: 20170305

REACTIONS (13)
  - Neutrophil count decreased [Unknown]
  - Fall [Unknown]
  - Anaemia [Not Recovered/Not Resolved]
  - White blood cell count decreased [Recovered/Resolved]
  - Humerus fracture [Unknown]
  - White blood cell count decreased [Unknown]
  - Blood albumin decreased [Unknown]
  - Blood urea increased [Unknown]
  - Protein urine present [Unknown]
  - Pneumonia [Recovered/Resolved]
  - Neutrophil count decreased [Recovered/Resolved]
  - Dementia Alzheimer^s type [Unknown]
  - Lymphocyte count decreased [Unknown]

NARRATIVE: CASE EVENT DATE: 20160511
